FAERS Safety Report 25258100 (Version 1)
Quarter: 2025Q2

REPORT INFORMATION
  Report Type: Report from Study
  Country: US (occurrence: US)
  Receive Date: 20250501
  Receipt Date: 20250501
  Transmission Date: 20250717
  Serious: Yes (Hospitalization)
  Sender: ACADIA PHARMACEUTICALS
  Company Number: US-ACADIA PHARMACEUTICALS INC.-ACA-2025-PIM-005009

PATIENT
  Age: 86 Year
  Sex: Male

DRUGS (16)
  1. NUPLAZID [Suspect]
     Active Substance: PIMAVANSERIN TARTRATE
     Indication: Parkinson^s disease
     Dosage: 34 MILLIGRAM, QD
     Route: 048
     Dates: start: 20250416
  2. NUPLAZID [Suspect]
     Active Substance: PIMAVANSERIN TARTRATE
     Dosage: 34 MILLIGRAM, QD
     Route: 048
  3. MELATONIN [Concomitant]
     Active Substance: MELATONIN
  4. MAG CITRATE [Concomitant]
  5. XARELTO [Concomitant]
     Active Substance: RIVAROXABAN
  6. METOPROLOL [Concomitant]
     Active Substance: METOPROLOL
  7. OXYBUTYNIN [Concomitant]
     Active Substance: OXYBUTYNIN
  8. ENTACAPONE [Concomitant]
     Active Substance: ENTACAPONE
  9. CARBIDOPA\LEVODOPA [Concomitant]
     Active Substance: CARBIDOPA\LEVODOPA
  10. TYLENOL ARTHRITIS PAIN [Concomitant]
     Active Substance: ACETAMINOPHEN
  11. LUBIPROSTONE [Concomitant]
     Active Substance: LUBIPROSTONE
  12. PREDNISONE [Concomitant]
     Active Substance: PREDNISONE
  13. DOXYCYCLINE [Concomitant]
     Active Substance: DOXYCYCLINE
  14. BENZONATATE [Concomitant]
     Active Substance: BENZONATATE
  15. RYTARY [Concomitant]
     Active Substance: CARBIDOPA\LEVODOPA
  16. GABAPENTIN [Concomitant]
     Active Substance: GABAPENTIN

REACTIONS (5)
  - Hypertension [Recovered/Resolved]
  - Muscle spasticity [Recovered/Resolved]
  - Aphonia [Recovered/Resolved]
  - Dry mouth [Recovered/Resolved]
  - Product dose omission issue [Recovered/Resolved]

NARRATIVE: CASE EVENT DATE: 20250418
